FAERS Safety Report 7074035-7 (Version None)
Quarter: 2010Q4

REPORT INFORMATION
  Report Type: 
  Country: None (occurrence: None)
  Receive Date: 20101029
  Receipt Date: 20101018
  Transmission Date: 20110411
  Serious: Yes (Other)
  Sender: FDA-Public Use
  Company Number: CH-ELI_LILLY_AND_COMPANY-CH201010004879

PATIENT
  Age: 68 Year
  Sex: Male
  Weight: 89 kg

DRUGS (10)
  1. FORTEO [Suspect]
     Dosage: 20 UG, DAILY (1/D)
     Route: 058
     Dates: start: 20100909, end: 20101016
  2. PRIMOFENAC [Concomitant]
     Indication: ARTHRITIS
     Dosage: 50 MG, 2/D
     Route: 048
  3. PANTOPRAZOLE SODIUM [Concomitant]
     Dosage: UNK, UNKNOWN
     Route: 048
  4. MYDOCALM [Concomitant]
     Indication: MUSCLE TIGHTNESS
     Dosage: 150 MG, 2/D
     Route: 048
  5. REMERON [Concomitant]
     Indication: DEPRESSION
     Dosage: 30 MG, DAILY (1/D)
     Route: 048
  6. BECOZYME FORTE [Concomitant]
     Dosage: UNK, DAILY (1/D)
     Route: 065
  7. VITAMIN B1 TAB [Concomitant]
     Dosage: UNK, UNKNOWN
     Route: 065
  8. VITAMIN B-12 [Concomitant]
     Dosage: UNK, UNKNOWN
     Route: 065
  9. VITAMIN B6 [Concomitant]
     Dosage: UNK, UNKNOWN
     Route: 065
  10. VITAMIN B-12 [Concomitant]
     Dosage: UNK, UNKNOWN
     Route: 065

REACTIONS (2)
  - RENAL CYST [None]
  - URETERAL DISORDER [None]
